FAERS Safety Report 10218651 (Version 1)
Quarter: 2014Q1

REPORT INFORMATION
  Report Type: Spontaneous
  Country: US (occurrence: None)
  Receive Date: 20140306
  Receipt Date: 20140306
  Transmission Date: 20141002
  Serious: Yes (Hospitalization, Other)
  Sender: FDA-Public Use
  Company Number: 163-21880-13054253

PATIENT
  Age: 72 Year
  Sex: Male

DRUGS (7)
  1. REVLIMID [Suspect]
     Indication: MYELODYSPLASTIC SYNDROME
     Route: 048
     Dates: start: 201301
  2. TORADOL (KETOROLAC TROMETHAMINE) [Concomitant]
  3. NASONEX (MOMETASONE FUROATE) [Concomitant]
  4. TRAMADOL (TRAMADOL) [Concomitant]
  5. CLARITIN (LORATADINE) [Concomitant]
  6. GABAPENTIN (GABAPENTIN) [Concomitant]
  7. PROTONIX [Concomitant]

REACTIONS (4)
  - Dehydration [None]
  - Back pain [None]
  - Febrile neutropenia [None]
  - Hypotension [None]
